FAERS Safety Report 8330095-4 (Version None)
Quarter: 2012Q2

REPORT INFORMATION
  Report Type: 
  Country: None (occurrence: None)
  Receive Date: 20120502
  Receipt Date: 20100112
  Transmission Date: 20120825
  Serious: No
  Sender: FDA-Public Use
  Company Number: US-TEVA-2010000138

PATIENT
  Sex: Female

DRUGS (4)
  1. PROVIGIL [Suspect]
     Indication: MEMORY IMPAIRMENT
     Route: 048
  2. NUVIGIL [Suspect]
     Indication: MEMORY IMPAIRMENT
     Route: 048
  3. NUVIGIL [Suspect]
     Indication: SLEEP DISORDER
  4. PROVIGIL [Suspect]
     Indication: SLEEP DISORDER

REACTIONS (1)
  - HEADACHE [None]
